FAERS Safety Report 12918268 (Version 3)
Quarter: 2017Q1

REPORT INFORMATION
  Report Type: Spontaneous
  Country: US (occurrence: US)
  Receive Date: 20161107
  Receipt Date: 20170104
  Transmission Date: 20170428
  Serious: Yes (Hospitalization, Other)
  Sender: FDA-Public Use
  Company Number: US-BAYER-2016-208359

PATIENT
  Age: 88 Year
  Sex: Male

DRUGS (4)
  1. ACETYLSALICYLIC ACID (} 100 MG) [Suspect]
     Active Substance: ASPIRIN
     Indication: ANTIPLATELET THERAPY
     Dosage: UNK
  2. CLOPIDOGREL [Interacting]
     Active Substance: CLOPIDOGREL BISULFATE
     Indication: ANTIPLATELET THERAPY
     Dosage: UNK
  3. ACETYLSALICYLIC ACID (} 100 MG) [Interacting]
     Active Substance: ASPIRIN
     Indication: ANTIPLATELET THERAPY
     Dosage: UNK
  4. APIXABAN [Interacting]
     Active Substance: APIXABAN
     Indication: ANTICOAGULANT THERAPY
     Dosage: UNK

REACTIONS (9)
  - Cholecystitis [Recovered/Resolved]
  - Gastrointestinal wall thickening [Recovered/Resolved]
  - Gallbladder perforation [Recovered/Resolved]
  - Pleural effusion [Recovered/Resolved]
  - Labelled drug-drug interaction medication error [Recovered/Resolved]
  - Haemobilia [Recovered/Resolved]
  - Haemorrhagic ascites [Recovered/Resolved]
  - Intra-abdominal haematoma [Recovered/Resolved]
  - Drug administration error [Recovered/Resolved]
